FAERS Safety Report 7946261-3 (Version None)
Quarter: 2011Q4

REPORT INFORMATION
  Report Type: 
  Country: None (occurrence: None)
  Receive Date: 20111129
  Receipt Date: 20111118
  Transmission Date: 20120403
  Serious: Yes (Other)
  Sender: FDA-Public Use
  Company Number: US-JNJFOC-20111109473

PATIENT
  Sex: Female
  Weight: 61.24 kg

DRUGS (4)
  1. IMURAN [Concomitant]
     Indication: CROHN'S DISEASE
     Route: 048
     Dates: start: 20110901
  2. STOOL SOFTENER [Concomitant]
     Indication: ABNORMAL FAECES
     Dates: start: 20110901
  3. REMICADE [Suspect]
     Indication: CROHN'S DISEASE
     Route: 042
     Dates: start: 20111001, end: 20111031
  4. IRON [Concomitant]
     Indication: IRON DEFICIENCY
     Route: 048
     Dates: start: 20110901

REACTIONS (4)
  - BLOOD PRESSURE DECREASED [None]
  - TREMOR [None]
  - DIZZINESS [None]
  - INFUSION RELATED REACTION [None]
